FAERS Safety Report 12372291 (Version 1)
Quarter: 2016Q2

REPORT INFORMATION
  Report Type: Spontaneous
  Country: IT (occurrence: IT)
  Receive Date: 20160516
  Receipt Date: 20160516
  Transmission Date: 20160815
  Serious: Yes (Other)
  Sender: FDA-Public Use
  Company Number: IT-WATSON-2016-09879

PATIENT
  Age: 27 Year
  Sex: Female

DRUGS (2)
  1. PEMETREXED (UNKNOWN) [Suspect]
     Active Substance: PEMETREXED
     Indication: OVARIAN CANCER
     Dosage: 250 MG, CYCLICAL
     Route: 042
     Dates: start: 20160224, end: 20160504
  2. CARBOPLATIN (UNKNOWN) [Suspect]
     Active Substance: CARBOPLATIN
     Indication: OVARIAN CANCER
     Dosage: 700 MG, CYCLICAL
     Route: 042
     Dates: start: 20160224, end: 20160504

REACTIONS (1)
  - Thrombocytopenia [Recovered/Resolved]

NARRATIVE: CASE EVENT DATE: 20160422
